FAERS Safety Report 5273206-X (Version None)
Quarter: 2007Q1

REPORT INFORMATION
  Report Type: 
  Country: None (occurrence: None)
  Receive Date: 20070319
  Receipt Date: 20070305
  Transmission Date: 20070707
  Serious: Yes (Other)
  Sender: FDA-Public Use
  Company Number: FACT0700065

PATIENT
  Age: 42 Year
  Sex: Male
  Weight: 113.4 kg

DRUGS (1)
  1. FACTIVE [Suspect]
     Indication: RESPIRATORY TRACT INFECTION BACTERIAL
     Dosage: 320 MG, QD, ORAL
     Route: 048
     Dates: start: 20070228, end: 20070228

REACTIONS (7)
  - DISORIENTATION [None]
  - DYSPNOEA [None]
  - FEELING COLD [None]
  - HYPERSENSITIVITY [None]
  - MALAISE [None]
  - PANIC REACTION [None]
  - VOMITING [None]
